FAERS Safety Report 18001042 (Version 6)
Quarter: 2020Q3

REPORT INFORMATION
  Report Type: Spontaneous
  Country: GB (occurrence: GB)
  Receive Date: 20200709
  Receipt Date: 20200813
  Transmission Date: 20201103
  Serious: Yes (Death, Hospitalization, Other)
  Sender: FDA-Public Use
  Company Number: GB-SA-2020SA175312

PATIENT

DRUGS (14)
  1. AMLODIPINE [Concomitant]
     Active Substance: AMLODIPINE BESYLATE
     Dosage: UNK
  2. ASPIRINE [Concomitant]
     Active Substance: ASPIRIN
     Dosage: UNK
  3. MEBEVERINE [Concomitant]
     Active Substance: MEBEVERINE
     Dosage: UNK
  4. AZATHIOPRINE. [Concomitant]
     Active Substance: AZATHIOPRINE
     Indication: ECZEMA
     Dosage: UNK
  5. DUPILUMAB [Suspect]
     Active Substance: DUPILUMAB
     Indication: ECZEMA
     Dosage: UNK
     Route: 065
     Dates: start: 201912, end: 20200518
  6. SIMVASTATIN. [Concomitant]
     Active Substance: SIMVASTATIN
     Dosage: UNK
  7. AMITRIPTYLINE [Concomitant]
     Active Substance: AMITRIPTYLINE
     Dosage: UNK
  8. TRAMADOL. [Concomitant]
     Active Substance: TRAMADOL
     Dosage: UNK
  9. METHOTREXATE. [Concomitant]
     Active Substance: METHOTREXATE
     Indication: ECZEMA
     Dosage: UNK
  10. MONOMIL [Concomitant]
     Active Substance: ISOSORBIDE MONONITRATE
     Dosage: UNK
  11. CLOPIDOGREL [Concomitant]
     Active Substance: CLOPIDOGREL BISULFATE
     Dosage: UNK
  12. DIHYDROCODEINE [Concomitant]
     Active Substance: DIHYDROCODEINE
     Dosage: UNK
  13. LOSARTAN. [Concomitant]
     Active Substance: LOSARTAN
     Dosage: UNK
  14. BISOPROLOL [Concomitant]
     Active Substance: BISOPROLOL
     Dosage: UNK

REACTIONS (17)
  - Loss of consciousness [Fatal]
  - Urinary tract infection [Unknown]
  - Neurological symptom [Unknown]
  - Facial paralysis [Unknown]
  - Acute kidney injury [Unknown]
  - Sepsis [Fatal]
  - Cerebral infarction [Unknown]
  - Hypernatraemia [Unknown]
  - Past-pointing [Unknown]
  - Status epilepticus [Fatal]
  - Thalamic infarction [Unknown]
  - Behaviour disorder [Unknown]
  - Constipation [Unknown]
  - Confusional state [Unknown]
  - Cerebrovascular accident [Fatal]
  - Fall [Unknown]
  - Nystagmus [Unknown]

NARRATIVE: CASE EVENT DATE: 2020
